FAERS Safety Report 9335542 (Version 3)
Quarter: 2013Q2

REPORT INFORMATION
  Report Type: Report from Study
  Country: JP (occurrence: JP)
  Receive Date: 20130605
  Receipt Date: 20130625
  Transmission Date: 20140414
  Serious: Yes (Hospitalization)
  Sender: FDA-Public Use
  Company Number: JP-GLAXOSMITHKLINE-B0890804A

PATIENT
  Age: 63 Year
  Sex: Female
  Weight: 42 kg

DRUGS (2)
  1. VOTRIENT [Suspect]
     Indication: LEIOMYOSARCOMA
     Dosage: 400MG PER DAY
     Route: 048
     Dates: start: 20130315, end: 20130508
  2. VOTRIENT [Suspect]
     Indication: LEIOMYOSARCOMA
     Dosage: 400MG PER DAY
     Route: 048
     Dates: start: 20130515, end: 20130527

REACTIONS (2)
  - Pneumothorax [Not Recovered/Not Resolved]
  - Haemoptysis [Recovered/Resolved]
